FAERS Safety Report 9168620 (Version 1)
Quarter: 2013Q1

REPORT INFORMATION
  Report Type: Spontaneous
  Country: US (occurrence: None)
  Receive Date: 20130314
  Receipt Date: 20130314
  Transmission Date: 20140127
  Serious: No
  Sender: FDA-Public Use
  Company Number: None

PATIENT
  Age: 50 Year
  Sex: Male

DRUGS (1)
  1. ENBREL PREFILLED SYR 25MG [Suspect]
     Route: 058
     Dates: start: 20101202

REACTIONS (2)
  - Tinnitus [None]
  - Mood swings [None]
